FAERS Safety Report 9939832 (Version 1)
Quarter: 2014Q1

REPORT INFORMATION
  Report Type: Report from Study
  Country: US (occurrence: US)
  Receive Date: 20140303
  Receipt Date: 20140303
  Transmission Date: 20141002
  Serious: No
  Sender: FDA-Public Use
  Company Number: US-ABBVIE-13P-163-1033226-00

PATIENT
  Age: 34 Year
  Sex: Female
  Weight: 72.64 kg

DRUGS (10)
  1. HUMIRA [Suspect]
     Indication: CROHN^S DISEASE
     Dates: start: 201011, end: 201212
  2. HUMIRA [Suspect]
     Dates: start: 201212
  3. AMITRIPTYLINE [Concomitant]
     Indication: DEPRESSION
  4. ASACOL [Concomitant]
     Indication: CROHN^S DISEASE
  5. ELMIRON [Concomitant]
     Indication: PRODUCT USED FOR UNKNOWN INDICATION
  6. ERRIN [Concomitant]
     Indication: CONTRACEPTION
  7. FISH OIL [Concomitant]
     Indication: NUTRITIONAL SUPPLEMENTATION
  8. GLUCOSAMINE + CHONDROITIN [Concomitant]
     Indication: NUTRITIONAL SUPPLEMENTATION
  9. MELOXICAM [Concomitant]
     Indication: INFLAMMATION
  10. VITAMIN B 6 [Concomitant]
     Indication: VITAMIN B6 DEFICIENCY

REACTIONS (2)
  - Nasal congestion [Not Recovered/Not Resolved]
  - Crohn^s disease [Recovered/Resolved]
